FAERS Safety Report 7296463-7 (Version None)
Quarter: 2011Q1

REPORT INFORMATION
  Report Type: 
  Country: None (occurrence: None)
  Receive Date: 20110216
  Receipt Date: 20110202
  Transmission Date: 20110831
  Serious: Yes (Hospitalization, Other)
  Sender: FDA-Public Use
  Company Number: PHHY2010FI65312

PATIENT
  Sex: Male

DRUGS (1)
  1. GLEEVEC [Suspect]
     Indication: CHRONIC MYELOID LEUKAEMIA
     Dosage: 4 TABS PER DAY (400 MG)
     Route: 048
     Dates: start: 20100727, end: 20100922

REACTIONS (3)
  - PLEURISY [None]
  - PNEUMONITIS [None]
  - DYSPNOEA [None]
